FAERS Safety Report 5642001-1 (Version None)
Quarter: 2008Q1

REPORT INFORMATION
  Report Type: 
  Country: None (occurrence: None)
  Receive Date: 20080227
  Receipt Date: 20080215
  Transmission Date: 20080703
  Serious: Yes (Hospitalization)
  Sender: FDA-Public Use
  Company Number: US-PFIZER INC-2008015197

PATIENT
  Sex: Female
  Weight: 45 kg

DRUGS (3)
  1. PREDNISOLONE [Suspect]
     Route: 048
  2. ETANERCEPT [Suspect]
     Indication: RHEUMATOID ARTHRITIS
     Dosage: DAILY DOSE:25MG-FREQ:FREQUENCY: 2 IN 1 WEEKS
     Route: 058
     Dates: start: 20070904, end: 20071208
  3. ETANERCEPT [Suspect]
     Dosage: DAILY DOSE:25MG-FREQ:FREQUENCY: 2 IN 1 WEEKS
     Route: 058

REACTIONS (4)
  - DRUG HYPERSENSITIVITY [None]
  - RASH [None]
  - RENAL FAILURE ACUTE [None]
  - URINARY TRACT INFECTION [None]
